FAERS Safety Report 13077074 (Version 1)
Quarter: 2016Q4

REPORT INFORMATION
  Report Type: Spontaneous
  Country: US (occurrence: US)
  Receive Date: 20161230
  Receipt Date: 20161230
  Transmission Date: 20170207
  Serious: Yes (Hospitalization, Other)
  Sender: FDA-Public Use
  Company Number: US-SAOL THERAPEUTICS-2016SAO01311

PATIENT
  Age: 41 Year
  Sex: Female

DRUGS (7)
  1. DILAUDID [Concomitant]
     Active Substance: HYDROMORPHONE HYDROCHLORIDE
     Dosage: UNK UNK, 6X/DAY
  2. LIDOCAINE. [Concomitant]
     Active Substance: LIDOCAINE
  3. MORPHINE [Suspect]
     Active Substance: MORPHINE
     Dosage: 4 MG, \DAY
     Route: 037
  4. HEPARIN WASH [Concomitant]
     Dosage: UNK UNK, 1X/MONTH
  5. STEROIDS (UNIDENTIFIED) [Concomitant]
  6. BACLOFEN. [Suspect]
     Active Substance: BACLOFEN
     Indication: SPINAL PAIN
     Dosage: 32.76 ?G, \DAY
     Route: 037
  7. ANTIBIOTICS (UNIDENTIFIED) [Concomitant]
     Dosage: UNK, \DAY

REACTIONS (17)
  - Nausea [Unknown]
  - Vulvovaginal burning sensation [Unknown]
  - Drug dose omission [None]
  - Cold sweat [Unknown]
  - Off label use [Unknown]
  - Pain [Recovering/Resolving]
  - Chills [Unknown]
  - Fatigue [Unknown]
  - Blood pressure increased [Unknown]
  - Feeling abnormal [Unknown]
  - Urinary tract infection [Unknown]
  - Asthenia [Unknown]
  - Dizziness [None]
  - Muscle spasms [Unknown]
  - Confusional state [Recovering/Resolving]
  - Fall [Unknown]
  - Device alarm issue [Unknown]

NARRATIVE: CASE EVENT DATE: 2016
